FAERS Safety Report 18517752 (Version 2)
Quarter: 2021Q3

REPORT INFORMATION
  Report Type: Spontaneous
  Country: US (occurrence: US)
  Receive Date: 20201118
  Receipt Date: 20210901
  Transmission Date: 20211014
  Serious: Yes (Other)
  Sender: FDA-Public Use
  Company Number: US-PFIZER INC-2020451616

PATIENT
  Age: 74 Year
  Sex: Male

DRUGS (1)
  1. SIROLIMUS. [Suspect]
     Active Substance: SIROLIMUS
     Indication: LUNG TRANSPLANT REJECTION
     Dosage: 1 MG, 1X/DAY (1MG, TABLET, BY MOUTH, ONCE A DAY)
     Route: 048
     Dates: start: 20201022

REACTIONS (5)
  - Faeces soft [Unknown]
  - Fatigue [Not Recovered/Not Resolved]
  - Fungal infection [Recovering/Resolving]
  - Off label use [Unknown]
  - Headache [Recovered/Resolved]

NARRATIVE: CASE EVENT DATE: 202010
